FAERS Safety Report 14267839 (Version 1)
Quarter: 2017Q4

REPORT INFORMATION
  Report Type: Spontaneous
  Country: US (occurrence: US)
  Receive Date: 20171211
  Receipt Date: 20171211
  Transmission Date: 20180321
  Serious: No
  Sender: FDA-Public Use
  Company Number: US-ROCHE-1945219

PATIENT
  Age: 81 Year
  Sex: Female

DRUGS (2)
  1. LUCENTIS [Suspect]
     Active Substance: RANIBIZUMAB
     Dosage: RIGHT EYE INJECTIONS ;ONGOING: NO
     Route: 050
  2. LUCENTIS [Suspect]
     Active Substance: RANIBIZUMAB
     Indication: NEOVASCULAR AGE-RELATED MACULAR DEGENERATION
     Dosage: LEFT EYE INJECTIONS EVERY 8 TO 10 WEEKS ;ONGOING: YES
     Route: 050

REACTIONS (4)
  - Retinal scar [Unknown]
  - Lacrimation increased [Unknown]
  - Visual field defect [Unknown]
  - Dry age-related macular degeneration [Unknown]

NARRATIVE: CASE EVENT DATE: 20170605
